FAERS Safety Report 13356814 (Version 2)
Quarter: 2017Q2

REPORT INFORMATION
  Report Type: Spontaneous
  Country: JP (occurrence: JP)
  Receive Date: 20170321
  Receipt Date: 20170519
  Transmission Date: 20170830
  Serious: Yes (Other)
  Sender: FDA-Public Use
  Company Number: JP-GILEAD-2017-0260056

PATIENT
  Sex: Male

DRUGS (3)
  1. ADALAT [Concomitant]
     Active Substance: NIFEDIPINE
  2. DEPAS [Concomitant]
     Active Substance: ETIZOLAM
  3. HARVONI [Suspect]
     Active Substance: LEDIPASVIR\SOFOSBUVIR
     Indication: CHRONIC HEPATITIS C
     Dosage: 1 DF, QD
     Route: 065
     Dates: start: 20161201, end: 20170223

REACTIONS (1)
  - Atrial fibrillation [Not Recovered/Not Resolved]
